FAERS Safety Report 14596206 (Version 2)
Quarter: 2018Q2

REPORT INFORMATION
  Report Type: Report from Study
  Country: US (occurrence: US)
  Receive Date: 20180303
  Receipt Date: 20180424
  Transmission Date: 20180711
  Serious: Yes (Hospitalization, Other)
  Sender: FDA-Public Use
  Company Number: US-TESARO, INC-US-2018TSO00979

PATIENT

DRUGS (3)
  1. ZEJULA [Suspect]
     Active Substance: NIRAPARIB
     Dosage: 200 MG, QD
     Route: 048
     Dates: start: 20171225
  2. ZEJULA [Suspect]
     Active Substance: NIRAPARIB
     Indication: BENIGN HYDATIDIFORM MOLE
     Dosage: UNK
     Route: 065
     Dates: start: 20170818
  3. ZEJULA [Suspect]
     Active Substance: NIRAPARIB
     Dosage: UNK
     Route: 065
     Dates: end: 201802

REACTIONS (2)
  - Guillain-Barre syndrome [Recovering/Resolving]
  - Disease progression [Recovering/Resolving]

NARRATIVE: CASE EVENT DATE: 20180218
